FAERS Safety Report 6139982-9 (Version None)
Quarter: 2009Q1

REPORT INFORMATION
  Report Type: 
  Country: None (occurrence: None)
  Receive Date: 20090331
  Receipt Date: 20090331
  Transmission Date: 20090719
  Serious: Yes (Hospitalization, Other)
  Sender: FDA-Public Use
  Company Number: None

PATIENT
  Age: 29 Year
  Sex: Female
  Weight: 67.586 kg

DRUGS (4)
  1. YAZ [Suspect]
     Indication: CONTRACEPTION
     Dosage: 1/PILL 1 X DAILY PO
     Route: 048
     Dates: start: 20080815, end: 20090224
  2. YAZ [Suspect]
     Indication: OVARIAN CANCER
     Dosage: 1/PILL 1 X DAILY PO
     Route: 048
     Dates: start: 20080815, end: 20090224
  3. YAZ [Suspect]
     Indication: PROPHYLAXIS
     Dosage: 1/PILL 1 X DAILY PO
     Route: 048
     Dates: start: 20080815, end: 20090224
  4. ELAVIN [Concomitant]

REACTIONS (14)
  - ANXIETY [None]
  - CHEST DISCOMFORT [None]
  - CHEST PAIN [None]
  - DIZZINESS [None]
  - DYSPNOEA [None]
  - FEELING ABNORMAL [None]
  - FUNGAL INFECTION [None]
  - HEADACHE [None]
  - HYPOAESTHESIA [None]
  - OBSESSIVE THOUGHTS [None]
  - PARANOIA [None]
  - POST-TRAUMATIC STRESS DISORDER [None]
  - RASH [None]
  - VULVOVAGINAL DISCOMFORT [None]
